FAERS Safety Report 22193816 (Version 1)
Quarter: 2023Q2

REPORT INFORMATION
  Report Type: Report from Study
  Country: GB (occurrence: GB)
  Receive Date: 20230410
  Receipt Date: 20230410
  Transmission Date: 20230721
  Serious: Yes (Hospitalization)
  Sender: FDA-Public Use
  Company Number: GB-AstraZeneca-2020SF27508

PATIENT
  Age: 64 Year
  Sex: Male

DRUGS (2)
  1. ABIRATERONE ACETATE [Suspect]
     Active Substance: ABIRATERONE ACETATE
     Indication: Prostate cancer
     Route: 048
  2. ZOLADEX [Suspect]
     Active Substance: GOSERELIN ACETATE
     Indication: Prostate cancer
     Route: 058

REACTIONS (1)
  - Acute coronary syndrome [Recovered/Resolved with Sequelae]

NARRATIVE: CASE EVENT DATE: 20200807
